FAERS Safety Report 5912626-4 (Version None)
Quarter: 2008Q4

REPORT INFORMATION
  Report Type: 
  Country: None (occurrence: None)
  Receive Date: 20081008
  Receipt Date: 20080926
  Transmission Date: 20090506
  Serious: No
  Sender: FDA-Public Use
  Company Number: US-ELI_LILLY_AND_COMPANY-US200809002671

PATIENT
  Sex: Female

DRUGS (2)
  1. EVISTA [Suspect]
     Indication: BONE DENSITY DECREASED
     Dosage: UNK, UNKNOWN
     Route: 065
     Dates: start: 20050501
  2. VITAMINS [Concomitant]
     Dosage: UNK, UNKNOWN
     Route: 065

REACTIONS (7)
  - ARTHRALGIA [None]
  - BENIGN BREAST NEOPLASM [None]
  - BREAST MASS [None]
  - BREAST PAIN [None]
  - MUSCLE SPASMS [None]
  - SLEEP DISORDER [None]
  - VITAMIN D DECREASED [None]
